FAERS Safety Report 7555501-4 (Version None)
Quarter: 2011Q2

REPORT INFORMATION
  Report Type: 
  Country: None (occurrence: None)
  Receive Date: 20110617
  Receipt Date: 20110608
  Transmission Date: 20111010
  Serious: Yes (Other)
  Sender: FDA-Public Use
  Company Number: US-ASTRAZENECA-2011SE35260

PATIENT
  Age: 48 Year
  Sex: Female

DRUGS (2)
  1. NEXIUM [Suspect]
     Route: 048
  2. EFFEXOR XR [Suspect]
     Indication: DEPRESSION
     Route: 065

REACTIONS (3)
  - CONFUSIONAL STATE [None]
  - DEPRESSION [None]
  - HOMICIDAL IDEATION [None]
